FAERS Safety Report 20922830 (Version 1)
Quarter: 2022Q2

REPORT INFORMATION
  Report Type: Spontaneous
  Country: None (occurrence: US)
  Receive Date: 20220607
  Receipt Date: 20220607
  Transmission Date: 20220721
  Serious: Yes (Hospitalization)
  Sender: FDA-Public Use
  Company Number: US-Oxford Pharmaceuticals, LLC-2129534

PATIENT
  Age: 66 Year
  Sex: Male

DRUGS (3)
  1. BACLOFEN [Suspect]
     Active Substance: BACLOFEN
     Indication: Surgery
     Route: 037
  2. ZICONOTIDE [Suspect]
     Active Substance: ZICONOTIDE
  3. HYDROMORPHONE [Suspect]
     Active Substance: HYDROMORPHONE
     Route: 037

REACTIONS (2)
  - Mental status changes postoperative [Recovered/Resolved]
  - Overdose [Recovered/Resolved]
